FAERS Safety Report 24602669 (Version 1)
Quarter: 2024Q4

REPORT INFORMATION
  Report Type: Spontaneous
  Country: US (occurrence: None)
  Receive Date: 20241108
  Receipt Date: 20241108
  Transmission Date: 20250114
  Serious: Yes (Other)
  Sender: Public
  Company Number: None

PATIENT
  Age: 86 Year
  Sex: Female

DRUGS (1)
  1. IMATINIB [Suspect]
     Active Substance: IMATINIB
     Indication: Chronic myeloid leukaemia
     Dosage: 1 DF DOSAGE FORM DAILY ORAL ?
     Route: 048
     Dates: start: 20190801, end: 20240701

REACTIONS (6)
  - Weight decreased [None]
  - Dyspnoea [None]
  - Unevaluable event [None]
  - Asthenia [None]
  - Depression [None]
  - Therapy cessation [None]

NARRATIVE: CASE EVENT DATE: 20240701
